FAERS Safety Report 9404383 (Version 1)
Quarter: 2013Q3

REPORT INFORMATION
  Report Type: Report from Study
  Country: CA (occurrence: CA)
  Receive Date: 20130717
  Receipt Date: 20130717
  Transmission Date: 20140515
  Serious: Yes (Hospitalization)
  Sender: FDA-Public Use
  Company Number: CA-JNJFOC-20130707467

PATIENT
  Age: 36 Year
  Sex: Male
  Weight: 91.17 kg

DRUGS (1)
  1. REMICADE [Suspect]
     Indication: COLITIS ULCERATIVE
     Route: 042
     Dates: start: 2012, end: 201305

REACTIONS (2)
  - Colectomy [Unknown]
  - Drug ineffective [Unknown]
